FAERS Safety Report 22007777 (Version 1)
Quarter: 2023Q1

REPORT INFORMATION
  Report Type: Spontaneous
  Country: AU (occurrence: AU)
  Receive Date: 20230218
  Receipt Date: 20230218
  Transmission Date: 20230417
  Serious: Yes (Other)
  Sender: FDA-Public Use
  Company Number: AU-AMGEN-AUSSP2023025297

PATIENT
  Age: 52 Year
  Sex: Female

DRUGS (3)
  1. ADALIMUMAB [Suspect]
     Active Substance: ADALIMUMAB
     Indication: Product used for unknown indication
     Dosage: UNK
     Route: 058
     Dates: start: 201712, end: 201804
  2. ASTRAZENECA COVID-19 VACCINE [Concomitant]
     Active Substance: AZD-1222
     Indication: COVID-19 immunisation
     Dosage: UNK
     Route: 030
     Dates: start: 202106
  3. XELJANZ [Concomitant]
     Active Substance: TOFACITINIB CITRATE
     Indication: Psoriasis
     Dosage: 10 MILLIGRAM
     Dates: start: 20200521

REACTIONS (22)
  - Ankylosing spondylitis [Unknown]
  - Psoriatic arthropathy [Unknown]
  - Sjogren^s syndrome [Unknown]
  - Kidney infection [Unknown]
  - Urosepsis [Unknown]
  - Benign neoplasm of thyroid gland [Unknown]
  - Arteritis [Unknown]
  - Costochondritis [Unknown]
  - Lung disorder [Unknown]
  - Sacroiliitis [Unknown]
  - Spondylitis [Unknown]
  - Tendon pain [Unknown]
  - Liver function test abnormal [Unknown]
  - Synovitis [Unknown]
  - Dyspepsia [Unknown]
  - Anaemia [Unknown]
  - Urinary tract infection [Unknown]
  - Alopecia [Unknown]
  - Vasculitis [Unknown]
  - Headache [Unknown]
  - Psoriasis [Unknown]
  - Pyrexia [Unknown]

NARRATIVE: CASE EVENT DATE: 20180501
